FAERS Safety Report 5847021-X (Version None)
Quarter: 2008Q3

REPORT INFORMATION
  Report Type: 
  Country: None (occurrence: None)
  Receive Date: 20080815
  Receipt Date: 20080807
  Transmission Date: 20090109
  Serious: Yes (Hospitalization)
  Sender: FDA-Public Use
  Company Number: BE-TEVA-175790ISR

PATIENT
  Age: 52 Year
  Sex: Female

DRUGS (6)
  1. LORAZEPAM [Suspect]
     Indication: INSOMNIA
  2. ALPRAZOLAM [Suspect]
  3. TRAZODONE HCL [Suspect]
     Indication: ANTIDEPRESSANT THERAPY
  4. RISPERIDONE [Suspect]
     Dates: end: 20050601
  5. SERTRALINE [Suspect]
     Indication: ANTIDEPRESSANT THERAPY
     Dates: start: 20021101
  6. VENLAFAXINE HCL [Suspect]
     Indication: ANTIDEPRESSANT THERAPY

REACTIONS (1)
  - OSTEOPOROSIS [None]
